FAERS Safety Report 8463736-1 (Version None)
Quarter: 2012Q2

REPORT INFORMATION
  Report Type: 
  Country: None (occurrence: None)
  Receive Date: 20120625
  Receipt Date: 20120618
  Transmission Date: 20120825
  Serious: Yes (Other)
  Sender: FDA-Public Use
  Company Number: CHPA2012TR012915

PATIENT
  Sex: Female
  Weight: 80 kg

DRUGS (1)
  1. THERAFLU FORTE [Suspect]
     Dosage: UNK, UNK

REACTIONS (1)
  - URTICARIA [None]
